FAERS Safety Report 5536757-6 (Version None)
Quarter: 2007Q4

REPORT INFORMATION
  Report Type: 
  Country: None (occurrence: None)
  Receive Date: 20071206
  Receipt Date: 20070518
  Transmission Date: 20080405
  Serious: Yes (Other)
  Sender: FDA-Public Use
  Company Number: US-AMGEN-KDL221268

PATIENT
  Sex: Female
  Weight: 68.2 kg

DRUGS (14)
  1. ENBREL [Suspect]
     Indication: PSORIATIC ARTHROPATHY
     Route: 058
     Dates: start: 20021202, end: 20070201
  2. TYLENOL W/ CODEINE NO. 3 [Concomitant]
     Dates: start: 19970101
  3. PREMARIN [Concomitant]
     Dates: start: 19870701
  4. SALSALATE [Concomitant]
     Dates: start: 19990521
  5. XANAX [Concomitant]
     Dates: start: 19980911
  6. DILTIAZEM [Concomitant]
     Dates: start: 20020201
  7. ATENOLOL [Concomitant]
     Dates: start: 20030201
  8. ALLEGRA [Concomitant]
  9. ZOLOFT [Concomitant]
     Dates: start: 20050830
  10. COMBIVENT [Concomitant]
     Dates: start: 20050830
  11. FLONASE [Concomitant]
     Dates: start: 20060101
  12. HYDROCHLOROTHIAZIDE [Concomitant]
     Dates: start: 20060428
  13. SYNTHROID [Concomitant]
     Dates: start: 20060830
  14. LASIX [Concomitant]
     Dates: start: 20030506, end: 20060428

REACTIONS (1)
  - SQUAMOUS CELL CARCINOMA [None]
